FAERS Safety Report 6454566-0 (Version None)
Quarter: 2009Q4

REPORT INFORMATION
  Report Type: 
  Country: None (occurrence: None)
  Receive Date: 20091118
  Receipt Date: 20091102
  Transmission Date: 20100525
  Serious: Yes (Other)
  Sender: FDA-Public Use
  Company Number: 2009SA000714

PATIENT
  Sex: Male

DRUGS (3)
  1. MULTAQ [Suspect]
  2. CON MEDS [Concomitant]
  3. AMIODARONE HCL [Concomitant]

REACTIONS (2)
  - LUNG INFILTRATION [None]
  - RASH GENERALISED [None]
